FAERS Safety Report 16716273 (Version 2)
Quarter: 2019Q3

REPORT INFORMATION
  Report Type: Spontaneous
  Country: US (occurrence: US)
  Receive Date: 20190819
  Receipt Date: 20190822
  Transmission Date: 20191005
  Serious: No
  Sender: FDA-Public Use
  Company Number: US-ACTELION-A-US2019-194238

PATIENT
  Sex: Male
  Weight: 86.17 kg

DRUGS (2)
  1. ADEMPAS [Concomitant]
     Active Substance: RIOCIGUAT
  2. UPTRAVI [Suspect]
     Active Substance: SELEXIPAG
     Indication: PULMONARY ARTERIAL HYPERTENSION
     Dosage: 200 MCG, BID
     Route: 048
     Dates: end: 201907

REACTIONS (7)
  - Thermal burn [Unknown]
  - Ear disorder [Unknown]
  - Pain in extremity [Unknown]
  - Adverse drug reaction [Unknown]
  - Asthenia [Unknown]
  - Dyspnoea [Unknown]
  - Fluid retention [Unknown]
